FAERS Safety Report 22822036 (Version 3)
Quarter: 2023Q4

REPORT INFORMATION
  Report Type: Spontaneous
  Country: US (occurrence: US)
  Receive Date: 20230814
  Receipt Date: 20231023
  Transmission Date: 20240109
  Serious: Yes (Other)
  Sender: FDA-Public Use
  Company Number: US-XERIS PHARMACEUTICALS-2023XER02069

PATIENT
  Sex: Male
  Weight: 68.934 kg

DRUGS (14)
  1. RECORLEV [Suspect]
     Active Substance: LEVOKETOCONAZOLE
     Indication: Cushing^s syndrome
     Dosage: UNK
     Route: 048
     Dates: start: 20230626, end: 2023
  2. RECORLEV [Suspect]
     Active Substance: LEVOKETOCONAZOLE
     Dosage: 300 MG, 2X/DAY (AT BREAKFAST AND AT DINNER)
     Route: 048
     Dates: start: 2023, end: 202309
  3. RECORLEV [Suspect]
     Active Substance: LEVOKETOCONAZOLE
     Dosage: 1 TABLET (150 MG), 4X/DAY (EVERY 4 HOURS)
     Route: 048
     Dates: start: 202309
  4. AMLODIPINE [Concomitant]
     Active Substance: AMLODIPINE BESYLATE
  5. JARDIANCE [Concomitant]
     Active Substance: EMPAGLIFLOZIN
  6. LEVOTHYROXINE [Concomitant]
     Active Substance: LEVOTHYROXINE
  7. LISINOPRIL [Concomitant]
     Active Substance: LISINOPRIL
  8. METFORMIN [Concomitant]
     Active Substance: METFORMIN HYDROCHLORIDE
  9. DOXEPIN [Concomitant]
     Active Substance: DOXEPIN
  10. GLIPIZIDE [Concomitant]
     Active Substance: GLIPIZIDE
  11. ASPIRIN [Concomitant]
     Active Substance: ASPIRIN
  12. TYLENOL [Concomitant]
     Active Substance: ACETAMINOPHEN
  13. ALEVE [Concomitant]
     Active Substance: NAPROXEN SODIUM
  14. ZOLOFT [Concomitant]
     Active Substance: SERTRALINE HYDROCHLORIDE
     Dosage: UNK
     Dates: start: 202308

REACTIONS (6)
  - Prostate cancer [Unknown]
  - Nephrolithiasis [Unknown]
  - Asthenia [Recovering/Resolving]
  - Depressed mood [Unknown]
  - Fatigue [Unknown]
  - Unevaluable event [Unknown]

NARRATIVE: CASE EVENT DATE: 20230101
